FAERS Safety Report 7819614 (Version 3)
Quarter: 2015Q3

REPORT INFORMATION
  Report Type: Spontaneous
  Country: US (occurrence: US)
  Receive Date: 20110218
  Receipt Date: 20150730
  Transmission Date: 20151125
  Serious: Yes (Life-Threatening, Hospitalization, Other)
  Sender: FDA-Public Use
  Company Number: US-ASTRAZENECA-2010SE01696

PATIENT
  Age: 39 Year
  Sex: Male
  Weight: 90.7 kg

DRUGS (5)
  1. TOPROL XL [Suspect]
     Active Substance: METOPROLOL SUCCINATE
     Indication: BLOOD PRESSURE ABNORMAL
     Route: 048
     Dates: start: 2004
  2. MULTIPLE MEDICATION [Concomitant]
  3. TOPROL XL [Suspect]
     Active Substance: METOPROLOL SUCCINATE
     Indication: BLOOD PRESSURE ABNORMAL
     Route: 048
  4. NEXIUM [Suspect]
     Active Substance: ESOMEPRAZOLE MAGNESIUM
     Route: 048
  5. CRESTOR [Suspect]
     Active Substance: ROSUVASTATIN CALCIUM
     Route: 048

REACTIONS (11)
  - Peripheral arterial occlusive disease [Unknown]
  - Fall [Unknown]
  - Apparent death [Unknown]
  - Myocardial infarction [Unknown]
  - Coronary artery disease [Unknown]
  - Drug dose omission [Unknown]
  - Blood pressure inadequately controlled [Unknown]
  - Cardiac arrest [Unknown]
  - Hypertension [Unknown]
  - Depression [Unknown]
  - Stent malfunction [Unknown]

NARRATIVE: CASE EVENT DATE: 2005
